FAERS Safety Report 24303963 (Version 1)
Quarter: 2024Q3

REPORT INFORMATION
  Report Type: Spontaneous
  Country: US (occurrence: None)
  Receive Date: 20240910
  Receipt Date: 20240910
  Transmission Date: 20241017
  Serious: Yes (Hospitalization, Disabling)
  Sender: Public
  Company Number: None

PATIENT
  Age: 44 Year
  Sex: Male
  Weight: 114.75 kg

DRUGS (6)
  1. DEPO-MEDROL [Suspect]
     Active Substance: METHYLPREDNISOLONE ACETATE
     Indication: Cervical radiculopathy
     Route: 008
     Dates: start: 20240806, end: 20240806
  2. GABAPENTIN [Concomitant]
     Active Substance: GABAPENTIN
  3. MECLIZINE [Concomitant]
     Active Substance: MECLIZINE HYDROCHLORIDE
  4. Holter monitor [Concomitant]
  5. VITAMIN D [Concomitant]
     Active Substance: VITAMIN D NOS
  6. FISH OIL [Concomitant]
     Active Substance: FISH OIL

REACTIONS (12)
  - Blood pressure increased [None]
  - Presyncope [None]
  - Dizziness [None]
  - Vertigo [None]
  - Nausea [None]
  - Sinus tachycardia [None]
  - Anxiety [None]
  - Panic attack [None]
  - Impaired work ability [None]
  - Neck pain [None]
  - Condition aggravated [None]
  - Headache [None]

NARRATIVE: CASE EVENT DATE: 20240806
